FAERS Safety Report 17467597 (Version 1)
Quarter: 2020Q1

REPORT INFORMATION
  Report Type: Spontaneous
  Country: CN (occurrence: CN)
  Receive Date: 20200227
  Receipt Date: 20200227
  Transmission Date: 20200409
  Serious: Yes (Hospitalization, Other)
  Sender: FDA-Public Use
  Company Number: CN-PFIZER INC-2020084743

PATIENT
  Age: 48 Year
  Sex: Male

DRUGS (1)
  1. CELECOXIB. [Suspect]
     Active Substance: CELECOXIB
     Indication: GOUTY ARTHRITIS
     Dosage: 0.2 G, 1X/DAY
     Route: 048
     Dates: start: 20200130, end: 20200130

REACTIONS (3)
  - Product use in unapproved indication [Unknown]
  - Haemolytic anaemia [Recovering/Resolving]
  - Off label use [Unknown]

NARRATIVE: CASE EVENT DATE: 20200201
